FAERS Safety Report 9848990 (Version 1)
Quarter: 2014Q1

REPORT INFORMATION
  Report Type: Spontaneous
  Country: US (occurrence: None)
  Receive Date: 20140124
  Receipt Date: 20140124
  Transmission Date: 20141002
  Serious: Yes (Death)
  Sender: FDA-Public Use
  Company Number: None

PATIENT
  Age: 57 Year
  Sex: Female
  Weight: 68.95 kg

DRUGS (1)
  1. ZOMETA [Suspect]
     Dosage: ZOMETA 4MG IV EVERY 1 TO 3 MONTHS.
     Route: 042
     Dates: end: 20130821

REACTIONS (1)
  - Death [None]
